FAERS Safety Report 10169664 (Version 1)
Quarter: 2014Q2

REPORT INFORMATION
  Report Type: Spontaneous
  Country: US (occurrence: US)
  Receive Date: 20140513
  Receipt Date: 20140513
  Transmission Date: 20141212
  Serious: Yes (Other)
  Sender: FDA-Public Use
  Company Number: US-BAYER-2014-065274

PATIENT
  Age: 64 Year
  Sex: Female

DRUGS (2)
  1. CIPRO [Suspect]
     Indication: URINARY TRACT INFECTION
     Dosage: UNK
     Dates: start: 20140327
  2. MONISTAT [Suspect]
     Indication: FUNGAL INFECTION

REACTIONS (11)
  - Pain in extremity [None]
  - Gait disturbance [None]
  - Fungal infection [None]
  - Headache [None]
  - Pain [None]
  - Muscle tightness [None]
  - Gait disturbance [None]
  - Tendon pain [None]
  - Coordination abnormal [None]
  - Abasia [None]
  - Joint range of motion decreased [None]
